FAERS Safety Report 8280159-9 (Version None)
Quarter: 2012Q2

REPORT INFORMATION
  Report Type: 
  Country: None (occurrence: None)
  Receive Date: 20120412
  Receipt Date: 20120405
  Transmission Date: 20120825
  Serious: Yes (Hospitalization)
  Sender: FDA-Public Use
  Company Number: LB-MERCK-1204USA00995

PATIENT
  Age: 48 Year
  Sex: Male
  Weight: 88 kg

DRUGS (4)
  1. JANUMET [Suspect]
     Indication: DIABETES MELLITUS
     Route: 048
  2. ANTIMICROBIAL (UNSPECIFIED) [Concomitant]
     Route: 065
  3. METFORMIN HYDROCHLORIDE [Concomitant]
     Route: 065
  4. IRBESARTAN [Concomitant]
     Route: 065

REACTIONS (4)
  - HYPOTENSION [None]
  - SOMNOLENCE [None]
  - DEHYDRATION [None]
  - DIARRHOEA [None]
